FAERS Safety Report 15621913 (Version 1)
Quarter: 2018Q4

REPORT INFORMATION
  Report Type: Report from Study
  Country: US (occurrence: US)
  Receive Date: 20181115
  Receipt Date: 20181115
  Transmission Date: 20190205
  Serious: No
  Sender: FDA-Public Use
  Company Number: US-ALEXION PHARMACEUTICALS INC.-A201814762

PATIENT
  Sex: Male

DRUGS (3)
  1. SOLIRIS [Suspect]
     Active Substance: ECULIZUMAB
     Indication: PRODUCT USED FOR UNKNOWN INDICATION
     Dosage: UNK
     Route: 065
  2. VITAMIN B12 [Concomitant]
     Active Substance: CYANOCOBALAMIN
     Indication: PRODUCT USED FOR UNKNOWN INDICATION
     Dosage: UNK, PERIODICALLY
     Route: 065
  3. FERAHEME [Concomitant]
     Active Substance: FERUMOXYTOL NON-STOICHIOMETRIC MAGNETITE
     Indication: PRODUCT USED FOR UNKNOWN INDICATION
     Dosage: UNK, PERIODICALLY
     Route: 065
     Dates: start: 20100514

REACTIONS (12)
  - Mean platelet volume decreased [Unknown]
  - Blood bilirubin increased [Unknown]
  - Mean cell volume increased [Unknown]
  - Fatigue [Unknown]
  - Urobilinogen urine increased [Unknown]
  - Red blood cell count decreased [Unknown]
  - Sinusitis [Unknown]
  - Neutrophil count decreased [Unknown]
  - White blood cell count decreased [Unknown]
  - Haemoglobin decreased [Unknown]
  - Haematocrit decreased [Unknown]
  - Mean cell haemoglobin increased [Unknown]

NARRATIVE: CASE EVENT DATE: 20180821
